FAERS Safety Report 8015903-9 (Version None)
Quarter: 2011Q4

REPORT INFORMATION
  Report Type: 
  Country: None (occurrence: None)
  Receive Date: 20111230
  Receipt Date: 20111227
  Transmission Date: 20120403
  Serious: Yes (Hospitalization, Other)
  Sender: FDA-Public Use
  Company Number: US-VERTEX PHARMACEUTICALS INC.-AE-2011-005659

PATIENT
  Sex: Female

DRUGS (3)
  1. PEGASYS [Concomitant]
     Indication: HEPATITIS C
     Route: 058
     Dates: start: 20111026, end: 20111207
  2. INCIVEK [Suspect]
     Indication: HEPATITIS C
     Route: 048
     Dates: start: 20111026, end: 20111207
  3. RIBAVIRIN [Concomitant]
     Indication: HEPATITIS C
     Route: 048
     Dates: start: 20111026, end: 20111207

REACTIONS (7)
  - FATIGUE [None]
  - DYSPNOEA [None]
  - TEARFULNESS [None]
  - ASTHENIA [None]
  - OEDEMA [None]
  - HAEMOGLOBIN DECREASED [None]
  - DIZZINESS [None]
